FAERS Safety Report 7068436-0 (Version None)
Quarter: 2010Q4

REPORT INFORMATION
  Report Type: 
  Country: None (occurrence: None)
  Receive Date: 20101028
  Receipt Date: 20101020
  Transmission Date: 20110411
  Serious: Yes (Other)
  Sender: FDA-Public Use
  Company Number: D0068987A

PATIENT
  Sex: Male

DRUGS (1)
  1. ALTARGO [Suspect]
     Indication: WOUND
     Route: 061
     Dates: start: 20100927, end: 20100927

REACTIONS (7)
  - CONVULSION [None]
  - CRYING [None]
  - FEELING HOT [None]
  - GAZE PALSY [None]
  - GENERALISED ERYTHEMA [None]
  - MUSCLE SPASMS [None]
  - SKIN TIGHTNESS [None]
